FAERS Safety Report 6160650-1 (Version None)
Quarter: 2009Q2

REPORT INFORMATION
  Report Type: 
  Country: None (occurrence: None)
  Receive Date: 20090416
  Receipt Date: 20090408
  Transmission Date: 20091009
  Serious: Yes (Other)
  Sender: FDA-Public Use
  Company Number: 2009SP007826

PATIENT

DRUGS (2)
  1. TEMODAL [Suspect]
  2. DEXAMETHASONE TAB [Concomitant]

REACTIONS (1)
  - PULMONARY EMBOLISM [None]
